FAERS Safety Report 5231592-0 (Version None)
Quarter: 2007Q1

REPORT INFORMATION
  Report Type: 
  Country: None (occurrence: None)
  Receive Date: 20070202
  Receipt Date: 20070118
  Transmission Date: 20070707
  Serious: Yes (Hospitalization)
  Sender: FDA-Public Use
  Company Number: 200701IM000029

PATIENT
  Age: 52 Year
  Sex: Female

DRUGS (14)
  1. ACTIMMUNE [Suspect]
     Indication: OVARIAN CANCER RECURRENT
     Dosage: SUBCUTANEOUS
     Route: 058
     Dates: start: 20061216, end: 20061218
  2. AMBIEN [Concomitant]
  3. COUMADIN [Concomitant]
  4. FLONASE [Concomitant]
  5. KLONOPIN [Concomitant]
  6. LEXAPRO [Concomitant]
  7. LORTAB [Concomitant]
  8. MOBIC [Concomitant]
  9. VITAMIN CAP [Concomitant]
  10. NEXIUM [Concomitant]
  11. SOMA [Concomitant]
  12. VALIUM [Concomitant]
  13. PROVENTIL [Concomitant]
  14. MIRALAX [Concomitant]

REACTIONS (2)
  - ANAEMIA [None]
  - THROMBOCYTOPENIA [None]
